FAERS Safety Report 6207977-2 (Version None)
Quarter: 2009Q2

REPORT INFORMATION
  Report Type: 
  Country: None (occurrence: None)
  Receive Date: 20090529
  Receipt Date: 20090130
  Transmission Date: 20091009
  Serious: No
  Sender: FDA-Public Use
  Company Number: A0766143A

PATIENT
  Sex: Female

DRUGS (1)
  1. VENTOLIN [Suspect]
     Indication: DRUG USE FOR UNKNOWN INDICATION
     Dosage: 1SPR UNKNOWN
     Route: 055
     Dates: start: 20080129

REACTIONS (2)
  - ORAL PRURITUS [None]
  - SWOLLEN TONGUE [None]
